FAERS Safety Report 18074230 (Version 2)
Quarter: 2020Q3

REPORT INFORMATION
  Report Type: Spontaneous
  Country: US (occurrence: US)
  Receive Date: 20200727
  Receipt Date: 20200727
  Transmission Date: 20201103
  Serious: No
  Sender: FDA-Public Use
  Company Number: US-ABBVIE-19K-163-2865618-00

PATIENT
  Age: 83 Year
  Sex: Female

DRUGS (2)
  1. SYNTHROID [Suspect]
     Active Substance: LEVOTHYROXINE SODIUM
     Indication: AUTOIMMUNE THYROIDITIS
     Dosage: POTENCY 137 MICROGRAM
     Route: 048
     Dates: start: 1979
  2. SYNTHROID [Suspect]
     Active Substance: LEVOTHYROXINE SODIUM
     Route: 048
     Dates: start: 1979

REACTIONS (10)
  - Throat irritation [Recovered/Resolved]
  - Neck mass [Unknown]
  - Food intolerance [Unknown]
  - Diarrhoea [Recovering/Resolving]
  - Muscle spasms [Recovered/Resolved]
  - Nausea [Unknown]
  - Depressed mood [Unknown]
  - Hypersensitivity [Unknown]
  - Abdominal pain [Recovered/Resolved]
  - Tongue disorder [Recovered/Resolved]

NARRATIVE: CASE EVENT DATE: 2019
